FAERS Safety Report 24336684 (Version 1)
Quarter: 2024Q3

REPORT INFORMATION
  Report Type: Spontaneous
  Country: CN (occurrence: CN)
  Receive Date: 20240919
  Receipt Date: 20240919
  Transmission Date: 20241017
  Serious: No
  Sender: ROCHE
  Company Number: CN-ROCHE-3487386

PATIENT
  Age: 28 Year
  Sex: Male
  Weight: 100.0 kg

DRUGS (1)
  1. TAMIFLU [Suspect]
     Active Substance: OSELTAMIVIR PHOSPHATE
     Indication: Infection
     Dosage: TWO CAPSULES DAILY ON THE FIRST DAY, AND ONE CAPSULE DAILY ON THE NEXT DAY AND THEREAFTER, 1DF = 1CA
     Route: 048
     Dates: start: 20231106, end: 20231108

REACTIONS (2)
  - Vomiting [Recovering/Resolving]
  - Off label use [Unknown]

NARRATIVE: CASE EVENT DATE: 20231106
